FAERS Safety Report 16031872 (Version 23)
Quarter: 2020Q2

REPORT INFORMATION
  Report Type: Spontaneous
  Country: US (occurrence: US)
  Receive Date: 20190304
  Receipt Date: 20200624
  Transmission Date: 20200713
  Serious: Yes (Other)
  Sender: FDA-Public Use
  Company Number: US-PFIZER INC-2019081122

PATIENT
  Age: 72 Year
  Sex: Female
  Weight: 88 kg

DRUGS (33)
  1. TRAMADOL HCL [Concomitant]
     Active Substance: TRAMADOL HYDROCHLORIDE
     Dosage: UNK
  2. ALPRAZOLAM. [Concomitant]
     Active Substance: ALPRAZOLAM
     Dosage: UNK
  3. LEVOTHYROXINE SODIUM. [Concomitant]
     Active Substance: LEVOTHYROXINE SODIUM
     Dosage: UNK
  4. LOSARTAN POTASSIUM. [Concomitant]
     Active Substance: LOSARTAN POTASSIUM
     Dosage: UNK
  5. IBRANCE [Suspect]
     Active Substance: PALBOCICLIB
     Dosage: 100 MG, CYCLIC (DAILY, 2 WEEKS ON, 1 WEEK OFF)
     Route: 048
     Dates: start: 20180801
  6. FASLODEX [Concomitant]
     Active Substance: FULVESTRANT
     Dosage: 500 MG, MONTHLY (EVERY 4 WEEKS)
     Route: 030
     Dates: start: 20180801
  7. GRANIX [Concomitant]
     Active Substance: TBO-FILGRASTIM
     Dosage: UNK
  8. PEGFILGRASTIM [Concomitant]
     Active Substance: PEGFILGRASTIM
     Dosage: UNK
  9. ANUSOL-HC [HYDROCORTISONE ACETATE] [Concomitant]
     Dosage: UNK
  10. VITAMIN B12 [Concomitant]
     Active Substance: CYANOCOBALAMIN
     Dosage: UNK
  11. C 1000 [Concomitant]
     Dosage: UNK
  12. CRESTOR [Concomitant]
     Active Substance: ROSUVASTATIN CALCIUM
     Dosage: UNK
  13. CYCLOBENZAPRINE HCL [Concomitant]
     Active Substance: CYCLOBENZAPRINE HYDROCHLORIDE
     Dosage: UNK
  14. HYDROCODONE/ACETAMINOPHEN [Concomitant]
     Active Substance: ACETAMINOPHEN\HYDROCODONE
     Dosage: UNK
  15. NADOLOL. [Concomitant]
     Active Substance: NADOLOL
     Dosage: UNK
  16. XGEVA [Concomitant]
     Active Substance: DENOSUMAB
     Indication: METASTASES TO BONE
     Dosage: 120 MG, SINGLE
     Dates: start: 20180829
  17. ANASTROZOLE. [Concomitant]
     Active Substance: ANASTROZOLE
     Dosage: UNK
  18. VALACYCLOVIR HCL [Concomitant]
     Active Substance: VALACYCLOVIR HYDROCHLORIDE
     Dosage: UNK
  19. ONDANSETRON HCL [Concomitant]
     Active Substance: ONDANSETRON HYDROCHLORIDE
     Dosage: UNK
  20. FISH OIL [Concomitant]
     Active Substance: FISH OIL
     Dosage: UNK
  21. PREDNISONE. [Concomitant]
     Active Substance: PREDNISONE
     Dosage: UNK
  22. BIOTIN [Concomitant]
     Active Substance: BIOTIN
     Dosage: 1000 MG, 2X/DAY
  23. VITAMIN E [Concomitant]
     Active Substance: .ALPHA.-TOCOPHEROL
     Dosage: 1000 MG, 2X/DAY
  24. EMLA [Concomitant]
     Active Substance: LIDOCAINE\PRILOCAINE
     Dosage: UNK
  25. PROCHLORPERAZINE MALEATE. [Concomitant]
     Active Substance: PROCHLORPERAZINE MALEATE
     Dosage: UNK
  26. IBUPROFEN. [Concomitant]
     Active Substance: IBUPROFEN
     Dosage: UNK
  27. IBRANCE [Suspect]
     Active Substance: PALBOCICLIB
     Indication: BREAST CANCER FEMALE
     Dosage: 100 MG, CYCLIC (ONCE A DAY FOR 21 DAYS THEN OFF 7 DAYS/DAILY FOR 14 DAYS)
     Route: 048
     Dates: start: 20180706, end: 201807
  28. AMLODIPINE BESYLATE. [Concomitant]
     Active Substance: AMLODIPINE BESYLATE
     Dosage: UNK
  29. AMITRIPTYLINE HCL [Concomitant]
     Active Substance: AMITRIPTYLINE
     Dosage: UNK
  30. DIPHENHYDRAMINE HCL [Concomitant]
     Active Substance: DIPHENHYDRAMINE HYDROCHLORIDE
     Dosage: UNK
  31. FASLODEX [Concomitant]
     Active Substance: FULVESTRANT
     Indication: BREAST CANCER FEMALE
     Dosage: 250 MG, UNK (250 MG SHOTS, ONE IN EACH HIP)
     Dates: start: 2018, end: 2018
  32. CO Q 10 [UBIDECARENONE] [Concomitant]
     Dosage: UNK
  33. VITAMIN D3 [Concomitant]
     Active Substance: CHOLECALCIFEROL
     Dosage: UNK

REACTIONS (25)
  - Visual impairment [Unknown]
  - Ear pain [Unknown]
  - Dry skin [Not Recovered/Not Resolved]
  - Malaise [Recovered/Resolved]
  - Thinking abnormal [Unknown]
  - Hypoacusis [Unknown]
  - White blood cell count decreased [Unknown]
  - White blood cell disorder [Unknown]
  - Asthenia [Unknown]
  - Memory impairment [Unknown]
  - Musculoskeletal pain [Unknown]
  - Ear disorder [Unknown]
  - Arthralgia [Unknown]
  - Headache [Unknown]
  - Neutropenia [Unknown]
  - Skin exfoliation [Unknown]
  - Hormone level abnormal [Unknown]
  - Joint injury [Unknown]
  - Fatigue [Unknown]
  - Joint swelling [Unknown]
  - Alopecia [Not Recovered/Not Resolved]
  - Lymphoedema [Unknown]
  - Skin wrinkling [Unknown]
  - Feeling abnormal [Recovered/Resolved]
  - Hypermagnesaemia [Recovered/Resolved]

NARRATIVE: CASE EVENT DATE: 2018
